FAERS Safety Report 12933837 (Version 13)
Quarter: 2017Q1

REPORT INFORMATION
  Report Type: Report from Study
  Country: None (occurrence: AT)
  Receive Date: 20161111
  Receipt Date: 20170330
  Transmission Date: 20170428
  Serious: Yes (Hospitalization)
  Sender: FDA-Public Use
  Company Number: AT-ABBVIE-16P-009-1773385-00

PATIENT
  Age: 74 Year
  Sex: Female
  Weight: 59 kg

DRUGS (17)
  1. TRITTICO [Concomitant]
     Active Substance: TRAZODONE HYDROCHLORIDE
     Indication: DEPRESSION
  2. VINCRISTINE [Suspect]
     Active Substance: VINCRISTINE
     Indication: B-CELL LYMPHOMA
     Dosage: DOSES(2MG) PRIOR TO EVENTS: 25 OCT 16, 16 NOV 16
     Route: 042
     Dates: start: 20161025
  3. ENALAPRIL [Concomitant]
     Active Substance: ENALAPRIL
     Indication: HYPERTENSION
  4. TAVANIC [Concomitant]
     Active Substance: LEVOFLOXACIN
     Indication: INFECTION PROPHYLAXIS
     Dates: start: 20161119, end: 20170309
  5. PREDNISONE. [Suspect]
     Active Substance: PREDNISONE
     Indication: B-CELL LYMPHOMA
     Dosage: DOSES PRIOR TO EVENTS 29 OCT 16, 20NOV16 AND 16 JAN 17 (100 MG)
     Route: 048
     Dates: start: 20161025
  6. RATIOGRASTIM [Concomitant]
     Active Substance: FILGRASTIM
     Indication: PRODUCT USED FOR UNKNOWN INDICATION
     Dates: start: 20161029, end: 20161101
  7. RITUXIMAB [Suspect]
     Active Substance: RITUXIMAB
     Indication: B-CELL LYMPHOMA
     Dosage: RECENT DOSE 16 NOV 16, 12 JAN 17 PRIOR TO EVENTS
     Route: 042
     Dates: start: 20161025
  8. MEROPENEM. [Concomitant]
     Active Substance: MEROPENEM
     Indication: RESPIRATORY TRACT INFECTION
     Dates: start: 201611
  9. NEXIUM [Concomitant]
     Active Substance: ESOMEPRAZOLE MAGNESIUM
     Indication: PRODUCT USED FOR UNKNOWN INDICATION
  10. DOXORUBICIN [Suspect]
     Active Substance: DOXORUBICIN
     Indication: B-CELL LYMPHOMA
     Dosage: DOSES PRIOR TO EVENTS 25 OCT 2016, 16 NOV 2016 (90MG) AND 12 JAN 2017 (85MG)
     Route: 042
     Dates: start: 20161025
  11. JANUVIA [Concomitant]
     Active Substance: SITAGLIPTIN PHOSPHATE
     Indication: TYPE 2 DIABETES MELLITUS
  12. CRESTOR [Concomitant]
     Active Substance: ROSUVASTATIN CALCIUM
     Indication: HYPERCHOLESTEROLAEMIA
  13. CALCIUM GLYCEROPHOSPHATE\CELLULOSE\POLYETHYLENE GLYCOL\SACCHARIN SODIUM\SODIUM HYDROXIDE\SODIUM LAURYL SULFATE\SODIUM MAGNESIUM SILICATE\SODIUM MONOFLUOROPHOSPHATE\SORBITOL\WATER [Concomitant]
     Active Substance: CALCIUM GLYCEROPHOSPHATE\POLYETHYLENE GLYCOLS\POWDERED CELLULOSE\SACCHARIN SODIUM DIHYDRATE\SODIUM HYDROXIDE\SODIUM LAURYL SULFATE\SODIUM MAGNESIUM SILICATE\SODIUM MONOFLUOROPHOSPHATE\SORBITOL\WATER
     Indication: CONSTIPATION
  14. CYCLOPHOSPHAMIDE. [Suspect]
     Active Substance: CYCLOPHOSPHAMIDE
     Indication: B-CELL LYMPHOMA
     Dosage: DOSES PRIOR TO EVENTS, 25 OCT 2016, 16 NOV 2016 AND 12 JAN 2017(1350MG)
     Route: 042
     Dates: start: 20161025
  15. THROMBO [Concomitant]
     Indication: THROMBOSIS PROPHYLAXIS
  16. HYDAL [Concomitant]
     Active Substance: HYDROMORPHONE HYDROCHLORIDE
     Indication: PAIN
  17. VENETOCLAX [Suspect]
     Active Substance: VENETOCLAX
     Indication: B-CELL LYMPHOMA
     Dosage: PRIOR TO FN + CRP INCREASED02NOV16, PRIOR TO AGRANULOCYTOSIS 24NOV16 AT 600MG(800MG DAILY)
     Route: 048
     Dates: start: 20161028, end: 20161124

REACTIONS (6)
  - Infection [Recovered/Resolved]
  - Agranulocytosis [Recovered/Resolved]
  - Febrile neutropenia [Recovered/Resolved]
  - Neutropenia [Recovered/Resolved]
  - Anaemia [Recovered/Resolved]
  - C-reactive protein increased [Recovered/Resolved]

NARRATIVE: CASE EVENT DATE: 20161102
